FAERS Safety Report 8336164-7 (Version None)
Quarter: 2012Q1

REPORT INFORMATION
  Report Type: 
  Country: None (occurrence: None)
  Receive Date: 20120329
  Receipt Date: 20091112
  Transmission Date: 20120608
  Serious: Yes (Other)
  Sender: FDA-Public Use
  Company Number: PHEH2009US16017

PATIENT
  Sex: Male

DRUGS (3)
  1. EXELON [Suspect]
     Indication: COGNITIVE DISORDER
     Dosage: 4.6 MG, QD, TRANSDERMAL 9.5 MG, QD TRANSDERMAL
     Route: 062
     Dates: start: 20081208
  2. EXELON [Suspect]
     Indication: DEMENTIA ALZHEIMER'S TYPE
     Dosage: 4.6 MG, QD, TRANSDERMAL 9.5 MG, QD TRANSDERMAL
     Route: 062
     Dates: start: 20081208
  3. COUMADIN [Suspect]
     Indication: ATRIAL FIBRILLATION

REACTIONS (3)
  - MALAISE [None]
  - ABDOMINAL PAIN UPPER [None]
  - GASTROINTESTINAL HAEMORRHAGE [None]
